FAERS Safety Report 23335948 (Version 1)
Quarter: 2023Q4

REPORT INFORMATION
  Report Type: Spontaneous
  Country: CN (occurrence: CN)
  Receive Date: 20231225
  Receipt Date: 20231225
  Transmission Date: 20240110
  Serious: Yes (Other)
  Sender: FDA-Public Use
  Company Number: CN-AMGEN-CHNSP2023226010

PATIENT
  Age: 67 Year
  Sex: Male
  Weight: 52 kg

DRUGS (2)
  1. KYPROLIS [Suspect]
     Active Substance: CARFILZOMIB
     Indication: Neoplasm
     Dosage: 42 MILLIGRAM, QD
     Route: 042
     Dates: start: 20231101, end: 20231101
  2. DARATUMUMAB [Suspect]
     Active Substance: DARATUMUMAB
     Indication: Neoplasm
     Dosage: 800 MILLIGRAM, QD
     Route: 042
     Dates: start: 20231103, end: 20231103

REACTIONS (1)
  - Myelosuppression [Recovering/Resolving]

NARRATIVE: CASE EVENT DATE: 20231106
